FAERS Safety Report 4856232-1 (Version None)
Quarter: 2005Q4

REPORT INFORMATION
  Report Type: 
  Country: None (occurrence: None)
  Receive Date: 20051215
  Receipt Date: 20051215
  Transmission Date: 20060501
  Serious: Yes (Life-Threatening)
  Sender: FDA-Public Use
  Company Number: None

PATIENT
  Age: 75 Year
  Sex: Male
  Weight: 76 kg

DRUGS (1)
  1. DEFINITY [Suspect]
     Indication: ECHOCARDIOGRAM
     Dosage: 1 VIAL   -1.5ML-   ONCE   IV
     Route: 042
     Dates: start: 20051206, end: 20051206

REACTIONS (7)
  - ANAPHYLACTIC REACTION [None]
  - ASTHENIA [None]
  - DIZZINESS [None]
  - FLUSHING [None]
  - HYPOTENSION [None]
  - SWELLING FACE [None]
  - SYNCOPE [None]
